FAERS Safety Report 5739660-1 (Version None)
Quarter: 2008Q2

REPORT INFORMATION
  Report Type: 
  Country: None (occurrence: None)
  Receive Date: 20080513
  Receipt Date: 20070410
  Transmission Date: 20081010
  Serious: Yes (Life-Threatening, Hospitalization)
  Sender: FDA-Public Use
  Company Number: MK-6033996

PATIENT
  Age: 34 Year
  Sex: Female

DRUGS (4)
  1. AZATHIOPRINE [Suspect]
     Indication: CROHN'S DISEASE
     Dosage: 150 MG;ORAL;DAILY
     Route: 048
     Dates: start: 20040101, end: 20070228
  2. VOLPLEX (SUCCINYLATED GELATIN) [Suspect]
     Indication: FLUID REPLACEMENT
     Dosage: 300 MG; INTRAVENOUS;1
     Route: 042
     Dates: start: 20070228
  3. MESALAMINE [Concomitant]
  4. RANITIDINE [Concomitant]

REACTIONS (11)
  - ASPARTATE AMINOTRANSFERASE INCREASED [None]
  - ATAXIA [None]
  - BLOOD BILIRUBIN INCREASED [None]
  - BLOOD PRESSURE INCREASED [None]
  - DEPRESSED LEVEL OF CONSCIOUSNESS [None]
  - JAUNDICE [None]
  - LACTIC ACIDOSIS [None]
  - MUSCULAR WEAKNESS [None]
  - RESPIRATORY RATE INCREASED [None]
  - TACHYCARDIA [None]
  - VOMITING [None]
